FAERS Safety Report 22325883 (Version 1)
Quarter: 2023Q2

REPORT INFORMATION
  Report Type: Spontaneous
  Country: US (occurrence: None)
  Receive Date: 20230515
  Receipt Date: 20230515
  Transmission Date: 20230721
  Serious: Yes (Hospitalization, Other)
  Sender: FDA-Public Use
  Company Number: None

PATIENT
  Age: 24 Year
  Sex: Male

DRUGS (16)
  1. PULMOZYME [Suspect]
     Active Substance: DORNASE ALFA
     Indication: Cystic fibrosis
     Dosage: FREQUENCY : DAILY;?
     Route: 055
     Dates: start: 20221230
  2. TRIKAFTA [Concomitant]
     Active Substance: ELEXACAFTOR\IVACAFTOR\TEZACAFTOR
  3. INSULIN ASPART [Concomitant]
     Active Substance: INSULIN ASPART
  4. LANTUS [Concomitant]
     Active Substance: INSULIN GLARGINE
  5. FAMOTIDINE [Concomitant]
  6. albuterol nebs [Concomitant]
  7. AZITHROMYCIN [Concomitant]
  8. URSODIOL [Concomitant]
  9. FERROUS SULFATE [Concomitant]
     Active Substance: FERROUS SULFATE
  10. mvw [Concomitant]
  11. sodium chloride nebs [Concomitant]
  12. FLUOXETINE [Concomitant]
     Active Substance: FLUOXETINE HYDROCHLORIDE
  13. ASMANEX [Concomitant]
     Active Substance: MOMETASONE FUROATE
  14. CREON [Concomitant]
     Active Substance: PANCRELIPASE AMYLASE\PANCRELIPASE LIPASE\PANCRELIPASE PROTEASE
  15. TRAZODONE [Concomitant]
     Active Substance: TRAZODONE HYDROCHLORIDE
  16. LISINOPRIL [Concomitant]

REACTIONS (2)
  - Pulmonary haemorrhage [None]
  - Infective pulmonary exacerbation of cystic fibrosis [None]

NARRATIVE: CASE EVENT DATE: 20230301
